FAERS Safety Report 7207385-1 (Version None)
Quarter: 2011Q1

REPORT INFORMATION
  Report Type: 
  Country: None (occurrence: None)
  Receive Date: 20110103
  Receipt Date: 20101222
  Transmission Date: 20110831
  Serious: Yes (Other)
  Sender: FDA-Public Use
  Company Number: PHHY2010GR87399

PATIENT
  Age: 37 Year
  Sex: Female
  Weight: 80 kg

DRUGS (3)
  1. TOPIRAMATE [Suspect]
     Indication: EMOTIONAL DISORDER
     Dosage: 200 MG, QD
     Route: 048
     Dates: start: 20041001, end: 20050501
  2. SEROQUEL [Concomitant]
     Indication: EMOTIONAL DISORDER
     Dosage: 200 MG, BID
  3. TEGRETOL [Suspect]
     Indication: EMOTIONAL DISORDER
     Dosage: 200 MG, QD
     Route: 048
     Dates: start: 20040801, end: 20041201

REACTIONS (1)
  - POLYARTHRITIS [None]
